FAERS Safety Report 9119505 (Version 3)
Quarter: 2013Q1

REPORT INFORMATION
  Report Type: Report from Study
  Country: US (occurrence: US)
  Receive Date: 20130226
  Receipt Date: 20130320
  Transmission Date: 20140127
  Serious: Yes (Hospitalization, Other)
  Sender: FDA-Public Use
  Company Number: US-TEVA-387419USA

PATIENT
  Age: 9 Year
  Sex: Male

DRUGS (37)
  1. METHOTREXATE [Suspect]
     Indication: ACUTE LYMPHOCYTIC LEUKAEMIA
     Route: 042
     Dates: start: 20121219
  2. VINCRISTINE [Suspect]
     Indication: ACUTE LYMPHOCYTIC LEUKAEMIA
     Route: 042
     Dates: end: 20130124
  3. DASATINIB [Suspect]
     Indication: ACUTE LYMPHOCYTIC LEUKAEMIA
     Dosage: 65 MILLIGRAM DAILY;
     Route: 048
     Dates: start: 20121112
  4. HYDROCORTISONE [Suspect]
     Indication: ACUTE LYMPHOCYTIC LEUKAEMIA
     Route: 042
     Dates: start: 20130123
  5. DEXAMETHASONE [Suspect]
     Indication: ACUTE LYMPHOCYTIC LEUKAEMIA
     Route: 042
     Dates: start: 20130123
  6. CYTARABINE [Suspect]
     Indication: ACUTE LYMPHOCYTIC LEUKAEMIA
     Route: 042
     Dates: start: 20121206
  7. CYCLOPHOSPHAMIDE [Suspect]
     Indication: ACUTE LYMPHOCYTIC LEUKAEMIA
     Route: 042
     Dates: start: 20121231
  8. METHYLPREDNISOLONE [Suspect]
     Indication: ACUTE LYMPHOCYTIC LEUKAEMIA
     Route: 042
  9. LEUCOVORIN [Suspect]
     Indication: ACUTE LYMPHOCYTIC LEUKAEMIA
     Dosage: 6 HOURS
     Route: 042
  10. ASPARAGINASE [Suspect]
     Indication: ACUTE LYMPHOCYTIC LEUKAEMIA
     Route: 030
     Dates: start: 20130128
  11. ACETAMINOPHEN [Concomitant]
     Dates: end: 20130123
  12. BISACODYL [Concomitant]
  13. HEPARIN FLUSH [Concomitant]
  14. HYDRALAZINE [Concomitant]
  15. LORAZEPAM [Concomitant]
  16. MORPHINE [Concomitant]
  17. ONDANSETRON [Concomitant]
  18. SENNA [Concomitant]
  19. MIRALAX [Concomitant]
     Dates: end: 20130124
  20. LACTULOSE [Concomitant]
  21. DOCUSATE [Concomitant]
  22. CEFEPIME [Concomitant]
  23. CALCIUM CARBONATE [Concomitant]
  24. SODIUM CHLORIDE [Concomitant]
  25. KETAMINE [Concomitant]
  26. MAALOX [Concomitant]
  27. MESNA [Concomitant]
  28. DEXTROSE [Concomitant]
  29. BACTRIM [Concomitant]
  30. LEUCOVORIN [Concomitant]
  31. PEGFILGRASTIM [Concomitant]
     Dates: end: 20130129
  32. DIPHENHYDRAMINE [Concomitant]
     Dates: end: 20130129
  33. METOCLOPRAMIDE [Concomitant]
     Dates: end: 20130129
  34. OXYCODONE [Concomitant]
  35. D5W [Concomitant]
     Dates: end: 20130125
  36. SODIUM BICARBONATE [Concomitant]
     Dates: end: 20130125
  37. POTASSIUM CHLORIDE [Concomitant]
     Dates: end: 20130125

REACTIONS (6)
  - Thrombocytopenia [Not Recovered/Not Resolved]
  - Anaemia [Recovered/Resolved]
  - Leukopenia [Not Recovered/Not Resolved]
  - Neutropenia [Not Recovered/Not Resolved]
  - Hypokalaemia [Not Recovered/Not Resolved]
  - Febrile neutropenia [Not Recovered/Not Resolved]
